FAERS Safety Report 9852670 (Version 2)
Quarter: 2014Q2

REPORT INFORMATION
  Report Type: Spontaneous
  Country: NO (occurrence: NO)
  Receive Date: 20140129
  Receipt Date: 20140415
  Transmission Date: 20141212
  Serious: Yes (Hospitalization)
  Sender: FDA-Public Use
  Company Number: NO-PFIZER INC-2014020863

PATIENT
  Age: 49 Year
  Sex: Male

DRUGS (4)
  1. LIPITOR [Suspect]
     Indication: BLOOD CHOLESTEROL INCREASED
     Dosage: 40 MG, 1X/DAY
     Route: 048
     Dates: start: 20131101, end: 20140104
  2. OLANZAPINE [Interacting]
     Indication: SCHIZOPHRENIA
     Dosage: 25 MG, UNK
  3. RISPERDAL [Interacting]
     Indication: SCHIZOPHRENIA
     Dosage: 2 MG, 2X/DAY
  4. RITALIN [Suspect]

REACTIONS (8)
  - Drug interaction [Recovering/Resolving]
  - Hypoxia [Recovering/Resolving]
  - Myalgia [Recovering/Resolving]
  - Rhabdomyolysis [Recovering/Resolving]
  - Asthenia [Recovering/Resolving]
  - Body temperature increased [Recovering/Resolving]
  - International normalised ratio increased [Unknown]
  - Toxicity to various agents [Unknown]
